FAERS Safety Report 25561656 (Version 1)
Quarter: 2025Q3

REPORT INFORMATION
  Report Type: Spontaneous
  Country: US (occurrence: US)
  Receive Date: 20250716
  Receipt Date: 20250716
  Transmission Date: 20251021
  Serious: No
  Sender: NOVO NORDISK
  Company Number: US-NOVOPROD-1353462

PATIENT
  Sex: Female

DRUGS (1)
  1. OZEMPIC [Suspect]
     Active Substance: SEMAGLUTIDE
     Indication: Type 2 diabetes mellitus
     Dosage: 1 MG, QW
     Route: 058
     Dates: start: 20240603

REACTIONS (6)
  - Abdominal distension [Unknown]
  - Flatulence [Unknown]
  - Abdominal pain upper [Unknown]
  - Constipation [Unknown]
  - Dyspepsia [Unknown]
  - Diarrhoea [Unknown]
